FAERS Safety Report 13532552 (Version 3)
Quarter: 2017Q2

REPORT INFORMATION
  Report Type: Report from Study
  Country: PL (occurrence: PL)
  Receive Date: 20170510
  Receipt Date: 20170530
  Transmission Date: 20170830
  Serious: Yes (Hospitalization)
  Sender: FDA-Public Use
  Company Number: PL-EMD SERONO-E2B_80063827

PATIENT
  Age: 58 Year
  Sex: Female
  Weight: 79 kg

DRUGS (7)
  1. AVELUMAB [Suspect]
     Active Substance: AVELUMAB
     Indication: OVARIAN CANCER
     Dosage: 10 MG/KG, REGIMEN, CYCLIC
     Route: 042
     Dates: start: 20161216, end: 20161216
  2. AVELUMAB [Suspect]
     Active Substance: AVELUMAB
     Dosage: 700 MG, CYCLIC, REGIMEN 10MG/KG
     Route: 042
     Dates: start: 20170126, end: 20170126
  3. AVELUMAB [Suspect]
     Active Substance: AVELUMAB
     Dosage: 710 MG, CYCLIC, REGIMEN 10MG/KG
     Route: 042
     Dates: start: 20170223, end: 20170223
  4. AVELUMAB [Suspect]
     Active Substance: AVELUMAB
     Dosage: 720 MG, CYCLIC, REGIMEN 10MG/KG
     Route: 042
     Dates: start: 20170309, end: 20170309
  5. AVELUMAB [Suspect]
     Active Substance: AVELUMAB
     Dosage: 660 MG, CYCLIC, REGIMEN 10MG/KG
     Route: 042
     Dates: start: 20170112, end: 20170112
  6. AVELUMAB [Suspect]
     Active Substance: AVELUMAB
     Dosage: 750 MG, CYCLIC, REGIMEN 10MG/KG
     Route: 042
     Dates: start: 20170209, end: 20170209
  7. AVELUMAB [Suspect]
     Active Substance: AVELUMAB
     Dosage: 710 MG, CYCLIC, REGIMEN 10MG/KG
     Route: 042
     Dates: start: 20161229, end: 20161229

REACTIONS (1)
  - Drug-induced liver injury [Recovered/Resolved with Sequelae]

NARRATIVE: CASE EVENT DATE: 20170323
